FAERS Safety Report 8051498-1 (Version None)
Quarter: 2012Q1

REPORT INFORMATION
  Report Type: 
  Country: None (occurrence: None)
  Receive Date: 20120117
  Receipt Date: 20120113
  Transmission Date: 20120608
  Serious: No
  Sender: FDA-Public Use
  Company Number: US-BAYER-2012-004839

PATIENT
  Age: 16 Year
  Sex: Female
  Weight: 57 kg

DRUGS (1)
  1. ALEVE (CAPLET) [Suspect]
     Dosage: DAILY DOSE 4400 MG
     Route: 048
     Dates: start: 20120113, end: 20120113

REACTIONS (2)
  - NAUSEA [None]
  - HEADACHE [None]
